FAERS Safety Report 10261892 (Version 2)
Quarter: 2014Q2

REPORT INFORMATION
  Report Type: Spontaneous
  Country: IT (occurrence: IT)
  Receive Date: 20140626
  Receipt Date: 20140626
  Transmission Date: 20141212
  Serious: Yes (Other)
  Sender: FDA-Public Use
  Company Number: PHHY2014IT038483

PATIENT
  Age: 35 Year
  Sex: Female

DRUGS (3)
  1. TEGRETOL [Suspect]
     Indication: CONVULSION
     Dosage: 10 DF, TOTAL
     Route: 048
     Dates: start: 20140223, end: 20140223
  2. TOPAMAX [Suspect]
     Indication: CONVULSION
     Dosage: 10 DF, TOTAL
     Route: 048
     Dates: start: 20140223, end: 20140223
  3. FRISIUM [Suspect]
     Indication: ANXIETY
     Dosage: 10 DF, TOTAL
     Route: 048
     Dates: start: 20140223, end: 20140223

REACTIONS (3)
  - Drug abuse [Recovered/Resolved]
  - Hypotension [Recovered/Resolved]
  - Sopor [Recovered/Resolved]
